FAERS Safety Report 24749001 (Version 1)
Quarter: 2024Q4

REPORT INFORMATION
  Report Type: Spontaneous
  Country: CN (occurrence: CN)
  Receive Date: 20241218
  Receipt Date: 20241218
  Transmission Date: 20250114
  Serious: Yes (Other)
  Sender: BAYER HEALTHCARE PHARMACEUTICALS INC.
  Company Number: CN-BAYER-2024A178045

PATIENT
  Age: 53 Year
  Sex: Female
  Weight: 65 kg

DRUGS (2)
  1. GADOBUTROL [Suspect]
     Active Substance: GADOBUTROL
     Indication: Magnetic resonance imaging pelvic
     Dosage: A HIGH PRESSURE INJECTION OF 7ML AT A RATE OF 1 ML/SECOND
     Route: 042
     Dates: start: 20241206, end: 20241206
  2. GADOBUTROL [Suspect]
     Active Substance: GADOBUTROL
     Indication: Intestinal mass

REACTIONS (4)
  - Blood pressure increased [None]
  - Papule [Recovered/Resolved]
  - Asthenia [Recovering/Resolving]
  - Respiratory rate increased [None]

NARRATIVE: CASE EVENT DATE: 20241206
